FAERS Safety Report 16578483 (Version 1)
Quarter: 2019Q3

REPORT INFORMATION
  Report Type: Spontaneous
  Country: DE (occurrence: DE)
  Receive Date: 20190716
  Receipt Date: 20190716
  Transmission Date: 20191004
  Serious: Yes (Congenital Anomaly)
  Sender: FDA-Public Use
  Company Number: DE-PFIZER INC-2019297095

PATIENT
  Sex: Male
  Weight: 2.89 kg

DRUGS (3)
  1. LEVETIRACETAM. [Suspect]
     Active Substance: LEVETIRACETAM
     Dosage: 2000 MG, 1X/DAY
     Route: 064
  2. ERYTHROMYCIN. [Concomitant]
     Active Substance: ERYTHROMYCIN
     Dosage: UNK, 12. - 28. GESTATIONAL WEEK
     Route: 064
  3. FOLIO FORTE [Concomitant]
     Active Substance: FOLIC ACID\VITAMINS
     Dosage: UNK
     Route: 064

REACTIONS (3)
  - Hemivertebra [Not Recovered/Not Resolved]
  - Scoliosis [Not Recovered/Not Resolved]
  - Plagiocephaly [Not Recovered/Not Resolved]

NARRATIVE: CASE EVENT DATE: 201207
